FAERS Safety Report 9494035 (Version 1)
Quarter: 2013Q3

REPORT INFORMATION
  Report Type: Spontaneous
  Country: GB (occurrence: None)
  Receive Date: 20130827
  Receipt Date: 20130827
  Transmission Date: 20140515
  Serious: No
  Sender: FDA-Public Use
  Company Number: GER/UKI/13/0034254

PATIENT
  Age: 85 Year
  Sex: Female

DRUGS (6)
  1. OMEPRAZOLE (OMEPRAZOLE) [Suspect]
     Indication: DUODENAL ULCER
     Route: 048
     Dates: end: 20130424
  2. CITALOPRAM (CITALOPRAM) [Suspect]
     Indication: PRODUCT USED FOR UNKNOWN INDICATION
     Route: 048
     Dates: end: 20130424
  3. CHLOROPHENIRAMINE (CHLOROPHENAMINE) [Concomitant]
  4. PARACETAMOL (PARACETAMOL) [Concomitant]
  5. SIMVASTATIN (SIMVASTATIN) [Concomitant]
  6. INDAPAMIDE (INDAPAMIDE) [Suspect]
     Indication: PRODUCT USED FOR UNKNOWN INDICATION
     Route: 048
     Dates: end: 20130424

REACTIONS (5)
  - Diarrhoea [None]
  - Hypokalaemia [None]
  - Hyponatraemia [None]
  - Lethargy [None]
  - Mobility decreased [None]
